FAERS Safety Report 9729411 (Version 2)
Quarter: 2015Q3

REPORT INFORMATION
  Report Type: Spontaneous
  Country: US (occurrence: US)
  Receive Date: 20131204
  Receipt Date: 20150804
  Transmission Date: 20151125
  Serious: No
  Sender: FDA-Public Use
  Company Number: US-GILEAD-2009-0021192

PATIENT
  Age: 62 Year
  Sex: Female
  Weight: 99.79 kg

DRUGS (17)
  1. NORVASC [Concomitant]
     Active Substance: AMLODIPINE BESYLATE
  2. PREDNISONE. [Concomitant]
     Active Substance: PREDNISONE
  3. PARACETAMOL/HYDROCODONE BITARTRATE [Concomitant]
  4. NEXIUM [Concomitant]
     Active Substance: ESOMEPRAZOLE MAGNESIUM
  5. LIPITOR [Concomitant]
     Active Substance: ATORVASTATIN CALCIUM
  6. LEVAQUIN [Concomitant]
     Active Substance: LEVOFLOXACIN
  7. NABUMETONE. [Concomitant]
     Active Substance: NABUMETONE
  8. LEVOXYL [Concomitant]
     Active Substance: LEVOTHYROXINE SODIUM
  9. ECHINACEA [Concomitant]
     Active Substance: ECHINACEA, UNSPECIFIED
  10. IMURAN [Concomitant]
     Active Substance: AZATHIOPRINE
  11. TRIAMTERENE AND HYDROCHLOROTHIAZIDE [Concomitant]
     Active Substance: HYDROCHLOROTHIAZIDE\TRIAMTERENE
  12. CALCIUM [Concomitant]
     Active Substance: CALCIUM
  13. MULTIVITAMIN [Concomitant]
     Active Substance: VITAMINS
  14. LETAIRIS [Suspect]
     Active Substance: AMBRISENTAN
     Indication: PULMONARY ARTERIAL HYPERTENSION
     Route: 048
     Dates: start: 20081007
  15. KLOR-CON [Concomitant]
     Active Substance: POTASSIUM CHLORIDE
  16. TRAZODONE [Concomitant]
     Active Substance: TRAZODONE HYDROCHLORIDE
  17. CRANBERRY + SOFTGEL [Concomitant]

REACTIONS (1)
  - Liver function test abnormal [Unknown]
